FAERS Safety Report 6412709-9 (Version None)
Quarter: 2009Q4

REPORT INFORMATION
  Report Type: 
  Country: None (occurrence: None)
  Receive Date: 20091023
  Receipt Date: 20091019
  Transmission Date: 20100525
  Serious: Yes (Life-Threatening, Hospitalization, Disabling)
  Sender: FDA-Public Use
  Company Number: PHHY2009GB41310

PATIENT
  Sex: Female

DRUGS (5)
  1. ZOMETA [Suspect]
     Indication: BREAST CANCER
     Dosage: 4 MG OR 5 MG, QMO
     Route: 042
  2. ZOMETA [Suspect]
     Indication: BONE PAIN
  3. ZOMETA [Suspect]
     Indication: OSTEOPOROSIS
  4. TAMOXIFEN CITRATE [Concomitant]
  5. HRT [Concomitant]

REACTIONS (3)
  - RASH [None]
  - SKIN EXFOLIATION [None]
  - TOXIC EPIDERMAL NECROLYSIS [None]
